FAERS Safety Report 6527770-0 (Version None)
Quarter: 2010Q1

REPORT INFORMATION
  Report Type: 
  Country: None (occurrence: None)
  Receive Date: 20100105
  Receipt Date: 20100105
  Transmission Date: 20100710
  Serious: No
  Sender: FDA-Public Use
  Company Number: None

PATIENT
  Age: 69 Year
  Sex: Female
  Weight: 65.7716 kg

DRUGS (1)
  1. ZETIA [Suspect]

REACTIONS (4)
  - ARTHRALGIA [None]
  - DRY THROAT [None]
  - FEAR [None]
  - MYALGIA [None]
